FAERS Safety Report 17856721 (Version 1)
Quarter: 2020Q2

REPORT INFORMATION
  Report Type: Spontaneous
  Country: FR (occurrence: FR)
  Receive Date: 20200603
  Receipt Date: 20200603
  Transmission Date: 20200714
  Serious: Yes (Other)
  Sender: FDA-Public Use
  Company Number: NVSC2020FR153558

PATIENT
  Age: 60 Year
  Sex: Male
  Weight: 88.5 kg

DRUGS (14)
  1. LOXEN (NICARDIPINE HYDROCHLORIDE) [Suspect]
     Active Substance: NICARDIPINE HYDROCHLORIDE
     Indication: HYPERTENSION
     Dosage: 1 DF, QD
     Route: 048
     Dates: start: 20200215, end: 20200306
  2. SANDIMMUN [Suspect]
     Active Substance: CYCLOSPORINE
     Indication: PROPHYLAXIS
     Dosage: 200 MG, QD
     Route: 042
     Dates: start: 20200212
  3. VFEND [Suspect]
     Active Substance: VORICONAZOLE
     Indication: PROPHYLAXIS
     Dosage: 750 MG, QD
     Route: 042
     Dates: start: 20200208, end: 20200303
  4. METFORMINE [Concomitant]
     Active Substance: METFORMIN HYDROCHLORIDE
     Indication: PRODUCT USED FOR UNKNOWN INDICATION
     Route: 065
  5. NEFOPAM MYLAN [Suspect]
     Active Substance: NEFOPAM
     Indication: PAIN
     Dosage: 120 MG, QD
     Route: 042
     Dates: start: 20200220, end: 20200301
  6. PANTOPRAZOLE MYLAN [Suspect]
     Active Substance: PANTOPRAZOLE SODIUM
     Indication: DYSPEPSIA
     Dosage: 40 MG, QD
     Route: 048
     Dates: start: 20200212
  7. TOPALGIC (TRAMADOL HYDROCHLORIDE) [Suspect]
     Active Substance: TRAMADOL HYDROCHLORIDE
     Indication: PAIN
     Dosage: 200 MG, QD
     Route: 042
     Dates: start: 20200215, end: 20200225
  8. NEBIVOLOL. [Concomitant]
     Active Substance: NEBIVOLOL
     Indication: PRODUCT USED FOR UNKNOWN INDICATION
     Route: 065
  9. MYCOPHENOLATE MOFETIL. [Concomitant]
     Active Substance: MYCOPHENOLATE MOFETIL
     Indication: PRODUCT USED FOR UNKNOWN INDICATION
     Route: 065
  10. REPAGLINIDE. [Suspect]
     Active Substance: REPAGLINIDE
     Indication: DIABETES MELLITUS
     Dosage: 3 MG, QD
     Route: 048
     Dates: end: 20200226
  11. WELLVONE [Concomitant]
     Active Substance: ATOVAQUONE
     Indication: PRODUCT USED FOR UNKNOWN INDICATION
     Route: 065
  12. CHOLURSO [Concomitant]
     Active Substance: URSODIOL
     Indication: PRODUCT USED FOR UNKNOWN INDICATION
     Route: 065
  13. LANTUS [Suspect]
     Active Substance: INSULIN GLARGINE
     Indication: DIABETES MELLITUS
     Dosage: 12 IU, QD
     Route: 058
     Dates: end: 20200226
  14. VALACICLOVIR [Concomitant]
     Active Substance: VALACYCLOVIR HYDROCHLORIDE
     Indication: PRODUCT USED FOR UNKNOWN INDICATION
     Route: 065

REACTIONS (1)
  - Cholestasis [Recovered/Resolved]

NARRATIVE: CASE EVENT DATE: 20200224
